FAERS Safety Report 17671988 (Version 6)
Quarter: 2022Q2

REPORT INFORMATION
  Report Type: Spontaneous
  Country: US (occurrence: US)
  Receive Date: 20200415
  Receipt Date: 20220525
  Transmission Date: 20220721
  Serious: Yes (Other)
  Sender: FDA-Public Use
  Company Number: US-BIOCODEX2-202000304

PATIENT

DRUGS (10)
  1. DIACOMIT [Suspect]
     Active Substance: STIRIPENTOL
     Indication: Severe myoclonic epilepsy of infancy
     Dosage: 3 CAPSULES OF 250MG.
     Dates: start: 20190524
  2. DIACOMIT [Suspect]
     Active Substance: STIRIPENTOL
     Dosage: DOSAGE REPORTED WAS UNCLEAR, TWO DOSAGES WERE REPORTED: 750MG PM AND 1000MG TWICE DAILY / 750MG IN T
  3. DIACOMIT [Suspect]
     Active Substance: STIRIPENTOL
     Dosage: 50MG AM, 750MG AT NOON AND 1000MG IN THE EVENING.
  4. DIACOMIT [Suspect]
     Active Substance: STIRIPENTOL
     Dosage: 250 MG THREE TIMES DAILY
  5. DIACOMIT [Suspect]
     Active Substance: STIRIPENTOL
     Dosage: 750 MG THREE TIMES DAILY
  6. DIAZEPAM [Concomitant]
     Active Substance: DIAZEPAM
     Indication: Product used for unknown indication
     Dosage: 10 MG, PRN
     Dates: start: 20211011
  7. MELATONIN [Concomitant]
     Active Substance: MELATONIN
     Indication: Product used for unknown indication
     Dosage: UNK
     Route: 065
  8. FELBAMATE [Concomitant]
     Active Substance: FELBAMATE
     Indication: Product used for unknown indication
     Dosage: 460 MG THREE TIMES DAILY
  9. FYCOMPA [Concomitant]
     Active Substance: PERAMPANEL
     Indication: Product used for unknown indication
     Route: 065
  10. CLOBAZAM [Concomitant]
     Active Substance: CLOBAZAM
     Indication: Product used for unknown indication
     Dosage: 5 MG DAILY AT NIGHT

REACTIONS (6)
  - Seizure [Unknown]
  - Fall [Unknown]
  - Head injury [Unknown]
  - Somnolence [Unknown]
  - Product use in unapproved indication [Unknown]
  - Product dose omission issue [Unknown]
